FAERS Safety Report 8332600-0 (Version None)
Quarter: 2012Q2

REPORT INFORMATION
  Report Type: 
  Country: None (occurrence: None)
  Receive Date: 20120503
  Receipt Date: 20120426
  Transmission Date: 20120825
  Serious: Yes (Hospitalization)
  Sender: FDA-Public Use
  Company Number: US-BAYER-2011-045473

PATIENT
  Age: 28 Year
  Sex: Female
  Weight: 104.31 kg

DRUGS (8)
  1. MEDROXYPROGESTERONE ACETATE [Concomitant]
     Dosage: 10 MG, UNK
     Dates: start: 20080925
  2. YASMIN [Suspect]
     Indication: CONTRACEPTION
     Dosage: UNK
     Dates: end: 20081120
  3. ZYRTEC [Concomitant]
  4. ALBUTEROL [Concomitant]
     Indication: ASTHMA
     Dosage: 2 PUFFS 4 TIMES A DAY
     Route: 045
     Dates: start: 19890101
  5. SINGULAIR [Concomitant]
     Indication: ASTHMA
     Dosage: 10 MG, DAILY
     Route: 048
  6. SYMBICORT [Concomitant]
     Indication: ASTHMA
     Dosage: 2 PUFFS DAILY
     Route: 045
     Dates: start: 19890101
  7. DROSPIRENONE AND ETHINYL ESTRADIOL [Suspect]
     Indication: CONTRACEPTION
     Dosage: UNK
     Route: 048
     Dates: start: 20080901, end: 20081101
  8. METFORMIN HCL [Concomitant]
     Indication: POLYCYSTIC OVARIES
     Dosage: 500 MG, BID
     Route: 048
     Dates: start: 20060101, end: 20080101

REACTIONS (5)
  - PULMONARY EMBOLISM [None]
  - ANXIETY [None]
  - INJURY [None]
  - PAIN [None]
  - DEPRESSION [None]
